FAERS Safety Report 5070170-3 (Version None)
Quarter: 2006Q3

REPORT INFORMATION
  Report Type: 
  Country: None (occurrence: None)
  Receive Date: 20060714
  Receipt Date: 20060410
  Transmission Date: 20061208
  Serious: No
  Sender: FDA-Public Use
  Company Number: 2006SP001635

PATIENT
  Age: 69 Year
  Sex: Male

DRUGS (1)
  1. LUNESTA [Suspect]
     Dosage: 2 MG; QD;ORAL
     Route: 048
     Dates: start: 20060406

REACTIONS (2)
  - DRUG INEFFECTIVE [None]
  - INSOMNIA [None]
